FAERS Safety Report 15571198 (Version 7)
Quarter: 2019Q1

REPORT INFORMATION
  Report Type: Report from Study
  Country: JP (occurrence: JP)
  Receive Date: 20181031
  Receipt Date: 20190315
  Transmission Date: 20190417
  Serious: Yes (Other)
  Sender: FDA-Public Use
  Company Number: JP-BEH-2018096194

PATIENT
  Age: 13 Year
  Sex: Male
  Weight: 52 kg

DRUGS (20)
  1. IDELVION [Suspect]
     Active Substance: COAGULATION FACTOR IX RECOMBINANT HUMAN
     Dosage: 2500 IU, QD
     Route: 042
     Dates: start: 20181226, end: 20181226
  2. IDELVION [Suspect]
     Active Substance: COAGULATION FACTOR IX RECOMBINANT HUMAN
     Indication: PROPHYLAXIS
     Dosage: 2500 IU, 1 WEEK
     Route: 042
     Dates: start: 20181022, end: 20181029
  3. IDELVION [Suspect]
     Active Substance: COAGULATION FACTOR IX RECOMBINANT HUMAN
     Dosage: 2500 IU, QD
     Route: 042
     Dates: start: 20181102, end: 20181102
  4. IDELVION [Suspect]
     Active Substance: COAGULATION FACTOR IX RECOMBINANT HUMAN
     Dosage: 2500 IU, QD
     Route: 042
     Dates: start: 20181109, end: 20181109
  5. IDELVION [Suspect]
     Active Substance: COAGULATION FACTOR IX RECOMBINANT HUMAN
     Dosage: 2500 IU, QD
     Route: 042
     Dates: start: 20181205, end: 20181205
  6. IDELVION [Suspect]
     Active Substance: COAGULATION FACTOR IX RECOMBINANT HUMAN
     Dosage: 3000 IU, QD
     Route: 042
     Dates: start: 20190125, end: 20190125
  7. NOVACT M FUJISAWA [Concomitant]
     Dosage: AVERAGE DOSE 1658IU 1613 TIMES
     Route: 065
     Dates: start: 20060129, end: 20181019
  8. IDELVION [Suspect]
     Active Substance: COAGULATION FACTOR IX RECOMBINANT HUMAN
     Dosage: 4000 IU, QD
     Route: 042
     Dates: start: 20190119, end: 20190119
  9. IDELVION [Suspect]
     Active Substance: COAGULATION FACTOR IX RECOMBINANT HUMAN
     Dosage: 2500 IU, QD
     Route: 042
     Dates: start: 20181231, end: 20181231
  10. IDELVION [Suspect]
     Active Substance: COAGULATION FACTOR IX RECOMBINANT HUMAN
     Dosage: 2500 IU, QD
     Route: 042
     Dates: start: 20190118, end: 20190118
  11. IDELVION [Suspect]
     Active Substance: COAGULATION FACTOR IX RECOMBINANT HUMAN
     Indication: FACTOR IX DEFICIENCY
     Dosage: 2500 IU, QD
     Route: 042
     Dates: start: 20180727, end: 20180727
  12. IDELVION [Suspect]
     Active Substance: COAGULATION FACTOR IX RECOMBINANT HUMAN
     Dosage: 2500 IU, QD
     Route: 042
     Dates: start: 20181114, end: 20181114
  13. IDELVION [Suspect]
     Active Substance: COAGULATION FACTOR IX RECOMBINANT HUMAN
     Dosage: 2500 IU, 1 WEEK
     Route: 042
     Dates: start: 20181123, end: 20181130
  14. IDELVION [Suspect]
     Active Substance: COAGULATION FACTOR IX RECOMBINANT HUMAN
     Dosage: 2500 IU, QD
     Route: 042
     Dates: start: 20190109, end: 20190109
  15. IDELVION [Suspect]
     Active Substance: COAGULATION FACTOR IX RECOMBINANT HUMAN
     Dosage: 2500 IU,
     Route: 042
     Dates: start: 20181025, end: 20181025
  16. IDELVION [Suspect]
     Active Substance: COAGULATION FACTOR IX RECOMBINANT HUMAN
     Dosage: 2500 IU, QD
     Route: 042
     Dates: start: 20181220, end: 20181220
  17. IDELVION [Suspect]
     Active Substance: COAGULATION FACTOR IX RECOMBINANT HUMAN
     Dosage: 2500 IU, QD
     Route: 042
     Dates: start: 20181025, end: 20181025
  18. IDELVION [Suspect]
     Active Substance: COAGULATION FACTOR IX RECOMBINANT HUMAN
     Dosage: 2500 IU, QD
     Route: 042
     Dates: start: 20181213, end: 20181213
  19. IDELVION [Suspect]
     Active Substance: COAGULATION FACTOR IX RECOMBINANT HUMAN
     Dosage: 2500 IU, QD
     Route: 042
     Dates: start: 20190112, end: 20190112
  20. IDELVION [Suspect]
     Active Substance: COAGULATION FACTOR IX RECOMBINANT HUMAN
     Indication: HAEMOSTASIS
     Dosage: 2500 IU, 6 DAYS
     Route: 042
     Dates: start: 20180920, end: 20181002

REACTIONS (14)
  - Haemorrhage subcutaneous [Unknown]
  - Haemorrhage subcutaneous [Unknown]
  - Pain in extremity [Unknown]
  - Pain in extremity [Unknown]
  - Arthralgia [Unknown]
  - Purpura [Recovered/Resolved]
  - Arthralgia [Unknown]
  - Nail bed bleeding [Unknown]
  - Drug ineffective [Recovering/Resolving]
  - Arthralgia [Unknown]
  - Swelling [Unknown]
  - Joint swelling [Unknown]
  - Peripheral swelling [Unknown]
  - Arthralgia [Unknown]

NARRATIVE: CASE EVENT DATE: 20180730
